FAERS Safety Report 5831201-3 (Version None)
Quarter: 2008Q3

REPORT INFORMATION
  Report Type: 
  Country: None (occurrence: None)
  Receive Date: 20080801
  Receipt Date: 20080527
  Transmission Date: 20090109
  Serious: No
  Sender: FDA-Public Use
  Company Number: US-BRISTOL-MYERS SQUIBB COMPANY-14206643

PATIENT
  Age: 84 Year
  Sex: Male
  Weight: 77 kg

DRUGS (3)
  1. COUMADIN [Suspect]
     Indication: ATRIAL FIBRILLATION
     Dosage: INTERRUPTED AND RESTARTED ON 5MG/D.
  2. ASPIRIN [Concomitant]
  3. LOVAZA [Concomitant]

REACTIONS (2)
  - CONSTIPATION [None]
  - RASH [None]
